FAERS Safety Report 10622237 (Version 2)
Quarter: 2015Q1

REPORT INFORMATION
  Report Type: Spontaneous
  Country: TW (occurrence: TW)
  Receive Date: 20141203
  Receipt Date: 20150225
  Transmission Date: 20150720
  Serious: Yes (Hospitalization)
  Sender: FDA-Public Use
  Company Number: TW-ACTELION-A-CH2014-108759

PATIENT
  Age: 34 Year
  Sex: Female
  Weight: 41 kg

DRUGS (5)
  1. TRACLEER [Suspect]
     Active Substance: BOSENTAN\BOSENTAN MONOHYDRATE
     Indication: PULMONARY ARTERIAL HYPERTENSION
     Dosage: UNK
     Route: 048
     Dates: start: 201408, end: 20150129
  2. ELTROXIN [Concomitant]
     Active Substance: LEVOTHYROXINE
     Indication: HYPOTHYROIDISM
  3. REMODULIN [Concomitant]
     Active Substance: TREPROSTINIL
     Indication: PULMONARY ARTERIAL HYPERTENSION
     Dosage: UNK
     Route: 058
     Dates: start: 201408
  4. REVATIO [Concomitant]
     Active Substance: SILDENAFIL CITRATE
     Indication: PULMONARY ARTERIAL HYPERTENSION
     Dosage: UNK
     Route: 048
     Dates: start: 201408
  5. AMIODARONE [Concomitant]
     Active Substance: AMIODARONE

REACTIONS (14)
  - Abdominal distension [Recovered/Resolved]
  - Fluid overload [Recovered/Resolved]
  - Oedema peripheral [Recovered/Resolved]
  - Acute kidney injury [Recovered/Resolved]
  - Pericardial effusion [Unknown]
  - Scoliosis [Unknown]
  - Weight increased [Recovered/Resolved]
  - Ascites [Unknown]
  - Balloon atrial septostomy [Unknown]
  - Urine output decreased [Recovered/Resolved]
  - Decreased appetite [Recovered/Resolved]
  - Gastrointestinal motility disorder [Recovered/Resolved]
  - Hepatic congestion [Recovered/Resolved]
  - Pleural effusion [Unknown]

NARRATIVE: CASE EVENT DATE: 201411
